FAERS Safety Report 6716919-2 (Version None)
Quarter: 2010Q2

REPORT INFORMATION
  Report Type: 
  Country: None (occurrence: None)
  Receive Date: 20100506
  Receipt Date: 20100506
  Transmission Date: 20101027
  Serious: Yes (Other)
  Sender: FDA-Public Use
  Company Number: None

PATIENT
  Age: 27 Year
  Sex: Male
  Weight: 86.36 kg

DRUGS (1)
  1. QUELICIN [Suspect]
     Indication: ANAESTHESIA
     Dosage: 100 MG X1 DOSE IV BOLUS
     Route: 040
     Dates: start: 20100505, end: 20100505

REACTIONS (2)
  - ANAESTHETIC COMPLICATION [None]
  - DRUG INEFFECTIVE [None]
